FAERS Safety Report 17581855 (Version 1)
Quarter: 2020Q1

REPORT INFORMATION
  Report Type: Report from Study
  Country: IT (occurrence: IT)
  Receive Date: 20200325
  Receipt Date: 20200325
  Transmission Date: 20200409
  Serious: Yes (Other)
  Sender: FDA-Public Use
  Company Number: IT-B.I. PHARMACEUTICALS,INC./RIDGEFIELD-2020-BI-015571

PATIENT
  Age: 62 Year
  Sex: Male

DRUGS (1)
  1. DABIGATRAN ETEXILATE [Suspect]
     Active Substance: DABIGATRAN ETEXILATE
     Indication: PRODUCT USED FOR UNKNOWN INDICATION
     Route: 048

REACTIONS (6)
  - Coronary artery stenosis [Unknown]
  - Arterial rupture [Unknown]
  - Arteriosclerosis coronary artery [Unknown]
  - Acute myocardial infarction [Unknown]
  - Coronary artery dissection [Unknown]
  - Coronary artery occlusion [Unknown]
